FAERS Safety Report 9648553 (Version 1)
Quarter: 2013Q4

REPORT INFORMATION
  Report Type: Spontaneous
  Country: DE (occurrence: DE)
  Receive Date: 20131028
  Receipt Date: 20131028
  Transmission Date: 20140711
  Serious: Yes (Congenital Anomaly, Other)
  Sender: FDA-Public Use
  Company Number: DE-ROCHE-1289288

PATIENT
  Sex: Male

DRUGS (9)
  1. RIVOTRIL [Suspect]
     Indication: EPILEPSY
     Dosage: FROM PREGNANCY WEEK 31+2
     Route: 064
     Dates: start: 20090305
  2. RIVOTRIL [Suspect]
     Dosage: UNTIL PREGNANCY WEEK 38+5
     Route: 064
     Dates: end: 20090426
  3. ERGENYL CHRONO [Suspect]
     Indication: EPILEPSY
     Route: 064
     Dates: start: 20080729
  4. ERGENYL CHRONO [Suspect]
     Dosage: FROM PREGNANCY WEEK 31+2
     Route: 064
     Dates: start: 20090305
  5. ERGENYL CHRONO [Suspect]
     Dosage: FROM PREGNANCY WEEK 32+4
     Route: 064
  6. ERGENYL CHRONO [Suspect]
     Dosage: FROM PREGNANCY WEEK 38+3
     Route: 064
  7. ERGENYL CHRONO [Suspect]
     Dosage: FROM PREGNANCY WEEK 38+6, IN 4-5 DOSES/DAY
     Route: 064
     Dates: end: 20090501
  8. FOLSAN [Concomitant]
     Dosage: BEFORE CONCEPTION AND DURING 1 TRIMESTER.
     Route: 064
  9. BETAMETHASONE [Concomitant]
     Indication: MATERNAL THERAPY TO ENHANCE FOETAL LUNG MATURITY
     Dosage: 3RD TRIMESTER
     Route: 064

REACTIONS (9)
  - Congenital central nervous system anomaly [Unknown]
  - Renal fusion anomaly [Not Recovered/Not Resolved]
  - Hypospadias [Not Recovered/Not Resolved]
  - Patent ductus arteriosus [Recovered/Resolved]
  - Atrial septal defect [Not Recovered/Not Resolved]
  - Hypotonia neonatal [Recovered/Resolved]
  - Feeding disorder neonatal [Recovered/Resolved]
  - Foetal exposure during pregnancy [Unknown]
  - Exposure during breast feeding [Unknown]
